FAERS Safety Report 6160091-7 (Version None)
Quarter: 2009Q2

REPORT INFORMATION
  Report Type: 
  Country: None (occurrence: None)
  Receive Date: 20090415
  Receipt Date: 20090330
  Transmission Date: 20091009
  Serious: Yes (Life-Threatening)
  Sender: FDA-Public Use
  Company Number: 8044459

PATIENT
  Age: 81 Year
  Sex: Male

DRUGS (10)
  1. KEPPRA [Suspect]
     Indication: GRAND MAL CONVULSION
     Dosage: 500 MG 2/D;
     Dates: start: 20090305, end: 20090305
  2. SINTROM [Concomitant]
  3. VITAMIN K [Concomitant]
  4. ENALAPRIL [Concomitant]
  5. FUROSEMIDE [Concomitant]
  6. PREDNISONE [Concomitant]
  7. DIGOXIN [Concomitant]
  8. OMEPRZOLE [Concomitant]
  9. SPIRIVA [Concomitant]
  10. NITROGLYCERIN [Concomitant]

REACTIONS (3)
  - ANGIOEDEMA [None]
  - DYSPHONIA [None]
  - INTERNATIONAL NORMALISED RATIO INCREASED [None]
